FAERS Safety Report 9572143 (Version 2)
Quarter: 2013Q4

REPORT INFORMATION
  Report Type: Spontaneous
  Country: US (occurrence: US)
  Receive Date: 20131001
  Receipt Date: 20131202
  Transmission Date: 20140711
  Serious: Yes (Death, Hospitalization)
  Sender: FDA-Public Use
  Company Number: US-PFIZER INC-2013277119

PATIENT
  Age: 61 Year
  Sex: Male

DRUGS (13)
  1. SUTENT [Suspect]
     Indication: RENAL CANCER
     Dosage: 50 MG, UNK
     Dates: start: 20130911
  2. ALBUTEROL SULFATE [Concomitant]
     Dosage: UNK
  3. AMLODIPINE BESILATE [Concomitant]
     Dosage: UNK
  4. ASCORBIC ACID [Concomitant]
     Dosage: UNK
  5. ASPIRIN LOW DOSE [Concomitant]
     Dosage: UNK
  6. CARVEDILOL [Concomitant]
     Dosage: UNK
  7. CYMBALTA [Concomitant]
     Dosage: UNK
  8. FUROSEMIDE [Concomitant]
     Dosage: UNK
  9. GABAPENTIN [Concomitant]
     Dosage: UNK
  10. LISINOPRIL [Concomitant]
     Dosage: UNK
  11. MOMETASONE FUROATE [Concomitant]
     Dosage: UNK
  12. SIMVASTATIN [Concomitant]
     Dosage: UNK
  13. SPIRIVA HANDIHALER [Concomitant]
     Dosage: UNK

REACTIONS (2)
  - Death [Fatal]
  - Fluid retention [Unknown]
